FAERS Safety Report 23142511 (Version 3)
Quarter: 2023Q4

REPORT INFORMATION
  Report Type: Spontaneous
  Country: JP (occurrence: JP)
  Receive Date: 20231103
  Receipt Date: 20231228
  Transmission Date: 20240109
  Serious: Yes (Hospitalization, Other)
  Sender: FDA-Public Use
  Company Number: JP-Korea IPSEN-2023-24983

PATIENT
  Age: 46 Year
  Sex: Male

DRUGS (1)
  1. LANREOTIDE ACETATE [Suspect]
     Active Substance: LANREOTIDE ACETATE
     Indication: Thyroid stimulating hormone-producing pituitary tumour
     Route: 058
     Dates: start: 20231017, end: 20231017

REACTIONS (1)
  - Ileus paralytic [Recovering/Resolving]

NARRATIVE: CASE EVENT DATE: 20231017
